FAERS Safety Report 9727687 (Version 1)
Quarter: 2013Q4

REPORT INFORMATION
  Report Type: Spontaneous
  Country: US (occurrence: US)
  Receive Date: 20131203
  Receipt Date: 20131203
  Transmission Date: 20140711
  Serious: No
  Sender: FDA-Public Use
  Company Number: US-GILEAD-2013-0088758

PATIENT
  Sex: Male

DRUGS (1)
  1. VIREAD [Suspect]
     Indication: HIV INFECTION
     Dosage: 300 MG, UNK

REACTIONS (1)
  - Malaise [Unknown]
